FAERS Safety Report 6488677-0 (Version None)
Quarter: 2009Q4

REPORT INFORMATION
  Report Type: 
  Country: None (occurrence: None)
  Receive Date: 20091207
  Receipt Date: 20090907
  Transmission Date: 20100525
  Serious: Yes (Other)
  Sender: FDA-Public Use
  Company Number: 1000008667

PATIENT
  Age: 28 Year
  Sex: Female

DRUGS (1)
  1. CITALOPRAM HYDROBROMIDE [Suspect]
     Indication: DEPRESSION
     Dosage: 20 MG (20 MG, 1 IN 1 D), ORAL
     Route: 048
     Dates: start: 20090201, end: 20090601

REACTIONS (8)
  - ANXIETY [None]
  - CRYING [None]
  - DEPRESSED MOOD [None]
  - DRUG EXPOSURE DURING PREGNANCY [None]
  - DRUG WITHDRAWAL SYNDROME [None]
  - FEELINGS OF WORTHLESSNESS [None]
  - INSOMNIA [None]
  - PREGNANCY [None]
